FAERS Safety Report 20192998 (Version 1)
Quarter: 2021Q4

REPORT INFORMATION
  Report Type: Spontaneous
  Country: US (occurrence: US)
  Receive Date: 20211216
  Receipt Date: 20211216
  Transmission Date: 20220304
  Serious: Yes (Hospitalization, Other)
  Sender: FDA-Public Use
  Company Number: US-GLENMARK PHARMACEUTICALS-2021GMK069268

PATIENT
  Age: 7 Year
  Sex: Male

DRUGS (4)
  1. ACYCLOVIR [Suspect]
     Active Substance: ACYCLOVIR
     Indication: Product used for unknown indication
     Dosage: 10 MILLIGRAM/KILOGRAM, TID
     Route: 042
  2. CEFTRIAXONE [Suspect]
     Active Substance: CEFTRIAXONE
     Indication: Product used for unknown indication
     Dosage: 50 MILLIGRAM/KILOGRAM, BID
     Route: 042
  3. VANCOMYCIN [Suspect]
     Active Substance: VANCOMYCIN
     Indication: Product used for unknown indication
     Dosage: 20 MILLIGRAM/KILOGRAM, QID
     Route: 042
  4. KETOROLAC [Concomitant]
     Active Substance: KETOROLAC TROMETHAMINE
     Indication: Analgesic therapy
     Dosage: 2 DOSAGE FORM, UNK
     Route: 042

REACTIONS (1)
  - Acute kidney injury [Recovered/Resolved]
